FAERS Safety Report 5977033-7 (Version None)
Quarter: 2008Q4

REPORT INFORMATION
  Report Type: 
  Country: None (occurrence: None)
  Receive Date: 20081125
  Receipt Date: 20081111
  Transmission Date: 20090506
  Serious: Yes (Hospitalization)
  Sender: FDA-Public Use
  Company Number: DSJ-2008-12238

PATIENT
  Age: 64 Year
  Sex: Male

DRUGS (8)
  1. OLMESARTAN MEDOXOMIL [Suspect]
     Indication: HYPERTENSION
     Dosage: 40 MG (20 MG,2 IN 1 D),PER ORAL
     Route: 048
     Dates: start: 20080904, end: 20080929
  2. NORVASC [Concomitant]
     Route: 061
  3. GLYCYRON (AMINOACETIC ACID, DL-METHIONINE, GLYCYRRHIZIC ACID)(TABLET)( [Concomitant]
  4. ACETYLSALICYLIC ACID SRT [Concomitant]
  5. TENORMIN [Concomitant]
  6. RYTHMODAN (DISOPYRAMIDE)(CAPSULE)(DISOPYRAMIDE) [Concomitant]
  7. SIGMART (NICORANDIL) (TABLET) (NICORANDIL) [Concomitant]
  8. URSO (URSODEOXYCHOLIC ACID)(TABLET)(URSODEOXYCHOLIC ACID) [Concomitant]

REACTIONS (1)
  - PLATELET COUNT DECREASED [None]
